FAERS Safety Report 6385010-X (Version None)
Quarter: 2009Q4

REPORT INFORMATION
  Report Type: 
  Country: None (occurrence: None)
  Receive Date: 20091002
  Receipt Date: 20090922
  Transmission Date: 20100525
  Serious: Yes (Other)
  Sender: FDA-Public Use
  Company Number: PHHY2009MX41330

PATIENT
  Age: 28 Year
  Sex: Female

DRUGS (1)
  1. TRILEPTAL [Suspect]
     Indication: EPILEPSY
     Dosage: 2 TABLETS DAILY
     Route: 048
     Dates: start: 20070701, end: 20090818

REACTIONS (5)
  - CONVULSION [None]
  - DENGUE FEVER [None]
  - DISCOMFORT [None]
  - FIBROMYALGIA [None]
  - VOMITING [None]
